FAERS Safety Report 22094518 (Version 1)
Quarter: 2023Q1

REPORT INFORMATION
  Report Type: Spontaneous
  Country: CA (occurrence: CA)
  Receive Date: 20230314
  Receipt Date: 20230314
  Transmission Date: 20230418
  Serious: Yes (Other)
  Sender: FDA-Public Use
  Company Number: CA-FreseniusKabi-FK202303027

PATIENT

DRUGS (1)
  1. PROPOFOL [Suspect]
     Active Substance: PROPOFOL
     Indication: Surgery
     Route: 065

REACTIONS (4)
  - Nervous system disorder [Recovered/Resolved]
  - Documented hypersensitivity to administered product [Recovered/Resolved]
  - Therapy non-responder [Recovered/Resolved]
  - Seizure [Recovered/Resolved]
